FAERS Safety Report 8114174-2 (Version None)
Quarter: 2012Q1

REPORT INFORMATION
  Report Type: 
  Country: None (occurrence: None)
  Receive Date: 20120205
  Receipt Date: 20120127
  Transmission Date: 20120608
  Serious: Yes (Other)
  Sender: FDA-Public Use
  Company Number: PHHY2012US007331

PATIENT
  Sex: Male

DRUGS (7)
  1. FUROSEMIDE [Concomitant]
     Dosage: 40 MG, BID
     Route: 048
  2. LORAZEPAM [Suspect]
     Dosage: 1 MG, TID
  3. WARFARIN SODIUM [Concomitant]
     Dosage: 4 MG, QD
     Route: 048
  4. SERTRALINE HYDROCHLORIDE [Concomitant]
     Dosage: 50 MG, QD
     Route: 048
  5. DIGOXIN [Concomitant]
     Dosage: 0.125 MG, QD
     Route: 048
  6. ACETAMINOPHEN [Concomitant]
     Dosage: 500 MG, QID
     Route: 048
  7. POTASSIUM [Concomitant]
     Dosage: 20 MEQ, BID
     Route: 048

REACTIONS (3)
  - ALCOHOL INTERACTION [None]
  - SUBDURAL HAEMATOMA [None]
  - FALL [None]
